FAERS Safety Report 5049791-X (Version None)
Quarter: 2006Q3

REPORT INFORMATION
  Report Type: 
  Country: None (occurrence: None)
  Receive Date: 20060706
  Receipt Date: 20060623
  Transmission Date: 20061208
  Serious: Yes (Other)
  Sender: FDA-Public Use
  Company Number: 2006081230

PATIENT
  Sex: Female

DRUGS (1)
  1. LYRICA [Suspect]
     Indication: NERVE INJURY

REACTIONS (5)
  - BLISTER [None]
  - GASTRIC DISORDER [None]
  - MULTI-ORGAN DISORDER [None]
  - SKIN ULCER [None]
  - SWELLING [None]
